FAERS Safety Report 9233753 (Version 1)
Quarter: 2013Q2

REPORT INFORMATION
  Report Type: Spontaneous
  Country: US (occurrence: US)
  Receive Date: 20130416
  Receipt Date: 20130416
  Transmission Date: 20140414
  Serious: Yes (Hospitalization)
  Sender: FDA-Public Use
  Company Number: US-BAYER-2013-047525

PATIENT
  Age: 36 Year
  Sex: Female
  Weight: 83.9 kg

DRUGS (6)
  1. YAZ [Suspect]
  2. GIANVI [Suspect]
  3. COPAXONE [Concomitant]
     Indication: MULTIPLE SCLEROSIS
     Dosage: 20 MG,DAILY
     Route: 030
  4. VICODIN [Concomitant]
     Indication: PAIN
     Dosage: 7.5/750 MG TABLETS DISPENSED [PER PR]; 5/500 NOTED, 1-2 TABLETS EVERY 6 HOURS AS NEEDED [PER MR]
     Dates: start: 20110520
  5. TRAVATAN [Concomitant]
     Dosage: 0.0004% SOLUTION
  6. MORPHINE [Concomitant]

REACTIONS (1)
  - Pulmonary embolism [None]
